FAERS Safety Report 8184647-5 (Version None)
Quarter: 2012Q1

REPORT INFORMATION
  Report Type: 
  Country: None (occurrence: None)
  Receive Date: 20120305
  Receipt Date: 20120301
  Transmission Date: 20120608
  Serious: Yes (Life-Threatening, Hospitalization)
  Sender: FDA-Public Use
  Company Number: DE-B.I. PHARMACEUTICALS,INC./RIDGEFIELD-2012-DE-00398DE

PATIENT
  Sex: Female
  Weight: 85 kg

DRUGS (24)
  1. ACTRAPHANE [Concomitant]
     Dosage: 30 ANZ
  2. CALCIUM D3 [Concomitant]
     Dosage: 2 ANZ
  3. HYDROCHLOROTHIAZIDE [Concomitant]
     Dosage: 12.5 NR
  4. NOVALGIN [Concomitant]
     Dosage: 4 ANZ
  5. PRADAXA [Suspect]
     Indication: EMBOLISM
  6. ACTRAPHANE [Concomitant]
     Dosage: 24 ANZ
  7. XIPAMID [Concomitant]
     Dosage: 10 MG
  8. TOBRAMAXIN [Concomitant]
     Dosage: 2 ANZ
  9. ACTRAPHANE [Concomitant]
     Dosage: 34 U
  10. ENOXAPARIN SODIUM [Concomitant]
     Dosage: 2 ANZ
  11. RED BLOODCELL CONCENTRATE [Concomitant]
     Indication: HAEMOGLOBIN
     Dosage: 4 ANZ
     Dates: start: 20120124
  12. ACTRAPHANE [Concomitant]
     Dosage: 10 U
  13. ACTRAPHANE [Concomitant]
     Dosage: 6 ANZ
  14. PRAVASTATIN [Concomitant]
     Dosage: 40 MG
  15. PANTOPRAZOLE [Concomitant]
     Dosage: 2 ANZ
     Dates: start: 20120127
  16. METRONIDAZOLE [Concomitant]
     Dosage: 3 ANZ
     Dates: start: 20120127
  17. ALLOPURINOL [Concomitant]
     Dosage: 300 MG
  18. SOTAHEXAL [Concomitant]
     Dosage: 1.5 ANZ
  19. AMOXICILLIN [Concomitant]
     Dosage: 3 ANZ
     Dates: start: 20120127
  20. METRONIDAZOLE [Concomitant]
     Dates: start: 20120127
  21. PRADAXA [Suspect]
     Indication: CEREBROVASCULAR ACCIDENT
     Dosage: 220 MG
     Route: 048
     Dates: start: 20110916, end: 20120124
  22. HYDROCHLOROTHIAZIDE [Concomitant]
     Dosage: 25 MG
  23. LEVOFLOXACIN [Concomitant]
     Indication: URINARY TRACT INFECTION
  24. NOVALGIN [Concomitant]
     Dosage: 60 ANZ

REACTIONS (10)
  - GASTRIC ULCER [None]
  - GASTRIC HAEMORRHAGE [None]
  - VOMITING [None]
  - HYPOACUSIS [None]
  - HAEMOGLOBIN [None]
  - HAEMATEMESIS [None]
  - HELICOBACTER TEST POSITIVE [None]
  - URINARY TRACT INFECTION [None]
  - WOUND [None]
  - MELAENA [None]
